FAERS Safety Report 9974986 (Version 1)
Quarter: 2014Q1

REPORT INFORMATION
  Report Type: Report from Study
  Country: US (occurrence: US)
  Receive Date: 20140306
  Receipt Date: 20140306
  Transmission Date: 20141002
  Serious: No
  Sender: FDA-Public Use
  Company Number: US-ABBVIE-13P-163-1155115-00

PATIENT
  Age: 51 Year
  Sex: Female

DRUGS (2)
  1. HUMIRA [Suspect]
     Indication: PSORIATIC ARTHROPATHY
     Dates: start: 20130726
  2. LYRICA [Concomitant]
     Indication: HYPOAESTHESIA

REACTIONS (5)
  - Wrong technique in drug usage process [Not Recovered/Not Resolved]
  - Incorrect dose administered [Not Recovered/Not Resolved]
  - Injection site papule [Not Recovered/Not Resolved]
  - Headache [Not Recovered/Not Resolved]
  - Nasal congestion [Not Recovered/Not Resolved]
